FAERS Safety Report 20860161 (Version 1)
Quarter: 2022Q2

REPORT INFORMATION
  Report Type: Spontaneous
  Country: US (occurrence: None)
  Receive Date: 20220520
  Receipt Date: 20220520
  Transmission Date: 20220721
  Serious: Yes (Other)
  Sender: FDA-Public Use
  Company Number: None

PATIENT
  Age: 42 Year
  Sex: Male

DRUGS (9)
  1. AMBRISENTAN [Suspect]
     Active Substance: AMBRISENTAN
     Indication: Pulmonary arterial hypertension
     Dosage: FREQUENCY : DAILY;?
     Route: 048
     Dates: start: 20211223
  2. TADALAFIL [Concomitant]
     Active Substance: TADALAFIL
  3. TORSEMIDE [Concomitant]
     Active Substance: TORSEMIDE
  4. ALLOPURINOL [Concomitant]
     Active Substance: ALLOPURINOL
  5. METFORMIN [Concomitant]
     Active Substance: METFORMIN HYDROCHLORIDE
  6. POTASSIUM CHLORIDE [Concomitant]
     Active Substance: POTASSIUM CHLORIDE
  7. COLCHICINE [Concomitant]
     Active Substance: COLCHICINE
  8. PANTOPRAZOLE [Concomitant]
     Active Substance: PANTOPRAZOLE
  9. CLINDAMYCIN [Concomitant]
     Active Substance: CLINDAMYCIN

REACTIONS (1)
  - Gout [None]

NARRATIVE: CASE EVENT DATE: 20220509
